FAERS Safety Report 20648228 (Version 1)
Quarter: 2022Q1

REPORT INFORMATION
  Report Type: Report from Study
  Country: US (occurrence: None)
  Receive Date: 20220329
  Receipt Date: 20220329
  Transmission Date: 20220423
  Serious: Yes (Death, Other)
  Sender: FDA-Public Use
  Company Number: 2022A126549

PATIENT
  Age: 84 Year

DRUGS (1)
  1. LYNPARZA [Suspect]
     Active Substance: OLAPARIB
     Dosage: 150.0MG UNKNOWN
     Route: 048

REACTIONS (2)
  - Death [Fatal]
  - Neoplasm malignant [Unknown]

NARRATIVE: CASE EVENT DATE: 20220322
